FAERS Safety Report 12185803 (Version 1)
Quarter: 2016Q1

REPORT INFORMATION
  Report Type: Spontaneous
  Country: FR (occurrence: FR)
  Receive Date: 20160316
  Receipt Date: 20160316
  Transmission Date: 20160526
  Serious: Yes (Life-Threatening)
  Sender: FDA-Public Use
  Company Number: FR-ROCHE-1726608

PATIENT
  Age: 83 Year
  Sex: Female

DRUGS (7)
  1. PROFENID [Suspect]
     Active Substance: KETOPROFEN
     Indication: PRODUCT USED FOR UNKNOWN INDICATION
     Dosage: 100MG/2ML
     Route: 030
     Dates: start: 20160220, end: 20160223
  2. REMINYL [Concomitant]
     Active Substance: GALANTAMINE
     Route: 065
  3. ROCEPHINE [Suspect]
     Active Substance: CEFTRIAXONE SODIUM
     Indication: CHOLECYSTITIS
     Route: 030
     Dates: start: 20160218, end: 20160219
  4. UVEDOSE [Concomitant]
     Active Substance: CHOLECALCIFEROL
  5. ROCEPHINE [Suspect]
     Active Substance: CEFTRIAXONE SODIUM
     Route: 030
     Dates: start: 20160223, end: 20160224
  6. AUGMENTIN [Suspect]
     Active Substance: AMOXICILLIN\CLAVULANATE POTASSIUM
     Indication: CHOLECYSTITIS
     Route: 048
     Dates: start: 20160219, end: 20160223
  7. SPASFON (FRANCE) [Concomitant]
     Active Substance: PHLOROGLUCINOL

REACTIONS (1)
  - Toxic epidermal necrolysis [Recovering/Resolving]

NARRATIVE: CASE EVENT DATE: 20160222
